FAERS Safety Report 18730393 (Version 1)
Quarter: 2021Q1

REPORT INFORMATION
  Report Type: Spontaneous
  Country: US (occurrence: US)
  Receive Date: 20210112
  Receipt Date: 20210112
  Transmission Date: 20210419
  Serious: No
  Sender: FDA-Public Use
  Company Number: US-INTRA-CELLULAR THERAPIES, INC.-2020ICT00269

PATIENT
  Age: 57 Year
  Sex: Male

DRUGS (1)
  1. CAPLYTA [Suspect]
     Active Substance: LUMATEPERONE
     Dosage: 42 MG, 1X/DAY

REACTIONS (5)
  - Muscle twitching [Unknown]
  - Dyskinesia [Unknown]
  - Muscle spasms [Unknown]
  - Muscle rigidity [Unknown]
  - Akathisia [Unknown]
